FAERS Safety Report 7525041-7 (Version None)
Quarter: 2011Q2

REPORT INFORMATION
  Report Type: 
  Country: None (occurrence: None)
  Receive Date: 20110602
  Receipt Date: 20110602
  Transmission Date: 20111010
  Serious: Yes (Hospitalization)
  Sender: FDA-Public Use
  Company Number: None

PATIENT
  Sex: Female
  Weight: 72.6 kg

DRUGS (1)
  1. CISPLATIN [Suspect]
     Dosage: 164.8 MG

REACTIONS (7)
  - VOMITING [None]
  - DEHYDRATION [None]
  - GAIT DISTURBANCE [None]
  - HYPOKALAEMIA [None]
  - NAUSEA [None]
  - DIARRHOEA [None]
  - ASTHENIA [None]
